FAERS Safety Report 7359881-4 (Version None)
Quarter: 2011Q1

REPORT INFORMATION
  Report Type: 
  Country: None (occurrence: None)
  Receive Date: 20110317
  Receipt Date: 20110212
  Transmission Date: 20110831
  Serious: No
  Sender: FDA-Public Use
  Company Number: US-B.I. PHARMACEUTICALS,INC./RIDGEFIELD-2010-BP-15233BP

PATIENT
  Sex: Female

DRUGS (5)
  1. CENTRUM SILVER [Concomitant]
     Indication: VITAMIN SUPPLEMENTATION
     Route: 048
     Dates: start: 20000101
  2. PRADAXA [Suspect]
     Indication: ATRIAL FIBRILLATION
     Dosage: 300 MG
     Route: 048
     Dates: start: 20101101
  3. LANOXIN [Concomitant]
     Indication: HYPERTENSION
     Route: 048
     Dates: start: 19980101
  4. COREG [Concomitant]
     Indication: HYPERTENSION
     Route: 048
     Dates: start: 19980101
  5. CAL/MG/ZINC [Concomitant]
     Indication: VITAMIN SUPPLEMENTATION
     Route: 048
     Dates: start: 20000101

REACTIONS (4)
  - HEART RATE INCREASED [None]
  - BLOOD PRESSURE INCREASED [None]
  - DIZZINESS [None]
  - NAUSEA [None]
